FAERS Safety Report 16862708 (Version 1)
Quarter: 2019Q3

REPORT INFORMATION
  Report Type: Spontaneous
  Country: GB (occurrence: GB)
  Receive Date: 20190927
  Receipt Date: 20190927
  Transmission Date: 20191005
  Serious: Yes (Hospitalization)
  Sender: FDA-Public Use
  Company Number: GB-ROCHE-2413846

PATIENT
  Age: 84 Year
  Sex: Female

DRUGS (5)
  1. LEVOTHYROXINE. [Concomitant]
     Active Substance: LEVOTHYROXINE
  2. LETROZOLE. [Concomitant]
     Active Substance: LETROZOLE
  3. CACIT VITAMIN D3 [Concomitant]
     Active Substance: CALCIUM CARBONATE\CHOLECALCIFEROL
  4. CAPECITABINE. [Suspect]
     Active Substance: CAPECITABINE
     Indication: CHEMOTHERAPY
     Route: 048
     Dates: start: 20190716, end: 20190730
  5. METHYLDOPA. [Concomitant]
     Active Substance: METHYLDOPA

REACTIONS (2)
  - Circulatory collapse [Not Recovered/Not Resolved]
  - Cardiotoxicity [Not Recovered/Not Resolved]

NARRATIVE: CASE EVENT DATE: 20190816
